FAERS Safety Report 8572893-8 (Version None)
Quarter: 2012Q3

REPORT INFORMATION
  Report Type: 
  Country: None (occurrence: None)
  Receive Date: 20120806
  Receipt Date: 20120801
  Transmission Date: 20120928
  Serious: Yes (Life-Threatening)
  Sender: FDA-Public Use
  Company Number: IT-ASTRAZENECA-2012SE54453

PATIENT
  Age: 27353 Day
  Sex: Male

DRUGS (6)
  1. LEVOTHYROXINE SODIUM [Concomitant]
     Route: 048
  2. DEBRUM [Concomitant]
     Dosage: 150MG+4MG
     Route: 048
  3. ZOLOFT [Concomitant]
     Route: 048
  4. DEURSIL [Concomitant]
     Route: 048
  5. SEROQUEL [Suspect]
     Indication: DEPRESSION
     Route: 048
  6. SEROQUEL [Suspect]
     Dosage: GENERIC, 3000 MG ONCE/SINGLE ADMINISTRATION
     Route: 048
     Dates: start: 20120331, end: 20120331

REACTIONS (3)
  - SOPOR [None]
  - SUICIDE ATTEMPT [None]
  - COMA [None]
